FAERS Safety Report 19395903 (Version 1)
Quarter: 2021Q2

REPORT INFORMATION
  Report Type: Spontaneous
  Country: TW (occurrence: TW)
  Receive Date: 20210609
  Receipt Date: 20210609
  Transmission Date: 20210717
  Serious: Yes (Other)
  Sender: FDA-Public Use
  Company Number: NVSC2021TW121272

PATIENT
  Sex: Female

DRUGS (4)
  1. NILOTINIB [Suspect]
     Active Substance: NILOTINIB
     Dosage: 400 MG, QD
     Route: 065
     Dates: start: 20190614
  2. DASATINIB. [Concomitant]
     Active Substance: DASATINIB
     Indication: CHRONIC MYELOID LEUKAEMIA
     Dosage: 100 MG, QD
     Route: 065
     Dates: start: 20130923, end: 20131121
  3. NILOTINIB [Suspect]
     Active Substance: NILOTINIB
     Indication: CHRONIC MYELOID LEUKAEMIA
     Dosage: UNK
     Route: 065
     Dates: start: 20080416, end: 20130922
  4. NILOTINIB [Suspect]
     Active Substance: NILOTINIB
     Dosage: 600 MG TO 800 MG, QD
     Route: 065
     Dates: start: 20131122

REACTIONS (4)
  - Drug resistance [Unknown]
  - Acute myocardial infarction [Unknown]
  - Peripheral arterial occlusive disease [Unknown]
  - Treatment failure [Unknown]

NARRATIVE: CASE EVENT DATE: 201309
